FAERS Safety Report 15716875 (Version 3)
Quarter: 2020Q1

REPORT INFORMATION
  Report Type: Spontaneous
  Country: US (occurrence: US)
  Receive Date: 20181213
  Receipt Date: 20200119
  Transmission Date: 20200409
  Serious: No
  Sender: FDA-Public Use
  Company Number: US-BIOGEN-2018BI00669838

PATIENT
  Sex: Male

DRUGS (3)
  1. TECFIDERA [Suspect]
     Active Substance: DIMETHYL FUMARATE
     Indication: MULTIPLE SCLEROSIS
     Dosage: TAKE 1 CAPSULE BY MOUTH TWICE A DAY?MAINTENANCE DOSE
     Route: 050
     Dates: start: 20181120
  2. VITAMIN D3 [Concomitant]
     Active Substance: CHOLECALCIFEROL
     Route: 065
  3. TECFIDERA [Suspect]
     Active Substance: DIMETHYL FUMARATE
     Route: 065

REACTIONS (7)
  - Product dose omission [Unknown]
  - Erythema [Unknown]
  - Pruritus [Unknown]
  - Erectile dysfunction [Unknown]
  - Rash [Recovered/Resolved with Sequelae]
  - Ejaculation failure [Unknown]
  - Flushing [Unknown]
